FAERS Safety Report 6607624-1 (Version None)
Quarter: 2010Q1

REPORT INFORMATION
  Report Type: 
  Country: None (occurrence: None)
  Receive Date: 20100217
  Receipt Date: 20100129
  Transmission Date: 20100710
  Serious: Yes (Other)
  Sender: FDA-Public Use
  Company Number: OMX-2010-00001

PATIENT
  Age: 51 Year
  Sex: Male

DRUGS (4)
  1. EVICEL [Suspect]
     Indication: HAEMOSTASIS
     Dates: start: 20091217, end: 20091217
  2. EVICEL [Suspect]
     Indication: NEPHRECTOMY
     Dates: start: 20091217, end: 20091217
  3. PRESSURE REGULATOR DEVICE [Suspect]
     Indication: HAEMOSTASIS
     Dosage: 2 BARS OF PRESSURE
     Dates: start: 20091217, end: 20091217
  4. PRESSURE REGULATOR DEVICE [Suspect]
     Indication: NEPHRECTOMY
     Dosage: 2 BARS OF PRESSURE
     Dates: start: 20091217, end: 20091217

REACTIONS (9)
  - AIR EMBOLISM [None]
  - BLOOD PRESSURE DECREASED [None]
  - CARDIAC DISORDER [None]
  - END-TIDAL CO2 DECREASED [None]
  - EXTRASYSTOLES [None]
  - HEART RATE DECREASED [None]
  - MEDICAL DEVICE COMPLICATION [None]
  - OXYGEN SATURATION DECREASED [None]
  - PROCEDURAL COMPLICATION [None]
